FAERS Safety Report 9767913 (Version 1)
Quarter: 2013Q4

REPORT INFORMATION
  Report Type: Report from Study
  Country: MX (occurrence: MX)
  Receive Date: 20131217
  Receipt Date: 20131217
  Transmission Date: 20140711
  Serious: Yes (Other)
  Sender: FDA-Public Use
  Company Number: PHHY2013MX146944

PATIENT
  Sex: Male

DRUGS (2)
  1. EXELON PATCH [Suspect]
     Indication: DEMENTIA ALZHEIMER^S TYPE
     Dosage: 9.5 MG, QD
     Route: 062
  2. EXELON PATCH [Suspect]
     Dosage: 13.3 MG, QD
     Route: 062

REACTIONS (4)
  - Parkinson^s disease [Unknown]
  - Gastrointestinal disorder [Unknown]
  - Hiatus hernia [Unknown]
  - Application site pruritus [Not Recovered/Not Resolved]
